FAERS Safety Report 20758947 (Version 5)
Quarter: 2025Q2

REPORT INFORMATION
  Report Type: Spontaneous
  Country: US (occurrence: US)
  Receive Date: 20220427
  Receipt Date: 20250528
  Transmission Date: 20250716
  Serious: Yes (Other)
  Sender: PFIZER
  Company Number: US-PFIZER INC-202101781155

PATIENT
  Age: 61 Year
  Sex: Female

DRUGS (19)
  1. XELJANZ XR [Suspect]
     Active Substance: TOFACITINIB CITRATE
     Indication: Rheumatoid arthritis
     Dosage: 11 MG, DAILY
     Route: 048
     Dates: start: 201912
  2. CELEBREX [Concomitant]
     Active Substance: CELECOXIB
     Indication: Arthritis
  3. ZYRTEC [Concomitant]
     Active Substance: CETIRIZINE HYDROCHLORIDE
  4. ASPIRIN [Concomitant]
     Active Substance: ASPIRIN
  5. DULOXETINE [Concomitant]
     Active Substance: DULOXETINE
  6. CRESTOR [Concomitant]
     Active Substance: ROSUVASTATIN CALCIUM
  7. HYDROCHLOROTHIAZIDE\VALSARTAN [Concomitant]
     Active Substance: HYDROCHLOROTHIAZIDE\VALSARTAN
  8. VITAMIN C [Concomitant]
     Active Substance: ASCORBIC ACID
  9. VITAMIN D3 [Concomitant]
     Active Substance: CHOLECALCIFEROL
  10. BISOPROLOL [Concomitant]
     Active Substance: BISOPROLOL
  11. IRON [Concomitant]
     Active Substance: IRON
  12. CALCIUM [Concomitant]
     Active Substance: CALCIUM
  13. FISH OIL [Concomitant]
     Active Substance: FISH OIL
  14. DITROPAN [Concomitant]
     Active Substance: OXYBUTYNIN CHLORIDE
  15. VALSARTAN [Concomitant]
     Active Substance: VALSARTAN
  16. ROSUVASTATIN [Concomitant]
     Active Substance: ROSUVASTATIN
  17. NITROGLYCERIN [Concomitant]
     Active Substance: NITROGLYCERIN
  18. GABAPENTIN [Concomitant]
     Active Substance: GABAPENTIN
  19. CELECOXIB [Concomitant]
     Active Substance: CELECOXIB

REACTIONS (6)
  - Movement disorder [Unknown]
  - Mental impairment [Unknown]
  - Condition aggravated [Not Recovered/Not Resolved]
  - Pain [Not Recovered/Not Resolved]
  - Loss of personal independence in daily activities [Unknown]
  - COVID-19 [Unknown]

NARRATIVE: CASE EVENT DATE: 20211210
